FAERS Safety Report 18855874 (Version 2)
Quarter: 2021Q1

REPORT INFORMATION
  Report Type: Spontaneous
  Country: JP (occurrence: JP)
  Receive Date: 20210206
  Receipt Date: 20210217
  Transmission Date: 20210420
  Serious: Yes (Death, Other)
  Sender: FDA-Public Use
  Company Number: JP-AUROBINDO-AUR-APL-2021-004937

PATIENT
  Age: 72 Year
  Sex: Male

DRUGS (2)
  1. MUNDESINE [Suspect]
     Active Substance: FORODESINE HYDROCHLORIDE
     Indication: PERIPHERAL T-CELL LYMPHOMA UNSPECIFIED
     Dosage: 600 MILLIGRAM, ONCE A DAY
     Route: 048
  2. PRALATREXATE INJECTION [Suspect]
     Active Substance: PRALATREXATE
     Indication: PERIPHERAL T-CELL LYMPHOMA UNSPECIFIED
     Dosage: UNK, DAILY
     Route: 042

REACTIONS (6)
  - White blood cell count decreased [Recovered/Resolved]
  - Blood lactate dehydrogenase increased [Unknown]
  - Death [Fatal]
  - Stomatitis [Unknown]
  - Haemoglobin decreased [Unknown]
  - Platelet count decreased [Recovered/Resolved]
